FAERS Safety Report 11220849 (Version 2)
Quarter: 2015Q2

REPORT INFORMATION
  Report Type: Spontaneous
  Country: US (occurrence: US)
  Receive Date: 20150626
  Receipt Date: 20150626
  Transmission Date: 20150821
  Serious: No
  Sender: FDA-Public Use
  Company Number: US-DRREDDYS-USA/USA/15/0047035

PATIENT
  Sex: Male

DRUGS (1)
  1. AMLODIPINE AND ATORVASTATIN [Suspect]
     Active Substance: AMLODIPINE BESYLATE\ATORVASTATIN CALCIUM TRIHYDRATE
     Indication: PRODUCT USED FOR UNKNOWN INDICATION
     Route: 048

REACTIONS (4)
  - Dyspepsia [Unknown]
  - Dysgeusia [Unknown]
  - Drug ineffective [Unknown]
  - Product quality issue [Unknown]
